FAERS Safety Report 12745038 (Version 1)
Quarter: 2016Q3

REPORT INFORMATION
  Report Type: Report from Study
  Country: DE (occurrence: DE)
  Receive Date: 20160915
  Receipt Date: 20160915
  Transmission Date: 20161109
  Serious: Yes (Hospitalization, Other)
  Sender: FDA-Public Use
  Company Number: DE-ROCHE-1798364

PATIENT
  Age: 74 Year
  Sex: Male
  Weight: 99 kg

DRUGS (1)
  1. ESBRIET [Suspect]
     Active Substance: PIRFENIDONE
     Indication: IDIOPATHIC PULMONARY FIBROSIS
     Route: 048
     Dates: start: 20150324, end: 20160820

REACTIONS (3)
  - Fatigue [Not Recovered/Not Resolved]
  - Diverticulum [Recovered/Resolved]
  - Haemorrhagic diathesis [Recovered/Resolved]

NARRATIVE: CASE EVENT DATE: 2016
